FAERS Safety Report 25289750 (Version 2)
Quarter: 2025Q3

REPORT INFORMATION
  Report Type: Spontaneous
  Country: JP (occurrence: JP)
  Receive Date: 20250509
  Receipt Date: 20250902
  Transmission Date: 20251021
  Serious: Yes (Other)
  Sender: MERCK SHARP & DOHME LLC
  Company Number: JP-009507513-2283557

PATIENT
  Age: 7 Decade
  Sex: Female

DRUGS (2)
  1. KEYTRUDA [Suspect]
     Active Substance: PEMBROLIZUMAB
     Indication: Cervix carcinoma
     Dosage: 200MG X 1/3 WEEK, 2 COURSES
     Route: 042
     Dates: start: 20250304
  2. CISPLATIN [Suspect]
     Active Substance: CISPLATIN
     Dosage: 40MG/M2 ? 1/WEEK
     Route: 042
     Dates: start: 20250304, end: 20250322

REACTIONS (1)
  - Myelosuppression [Recovered/Resolved]

NARRATIVE: CASE EVENT DATE: 20250422
